FAERS Safety Report 8480684-1 (Version None)
Quarter: 2012Q3

REPORT INFORMATION
  Report Type: 
  Country: None (occurrence: None)
  Receive Date: 20120702
  Receipt Date: 20120626
  Transmission Date: 20120928
  Serious: No
  Sender: FDA-Public Use
  Company Number: US-PFIZER INC-2012156733

PATIENT
  Sex: Female
  Weight: 67.1 kg

DRUGS (2)
  1. LYRICA [Suspect]
     Indication: FIBROMYALGIA
     Dosage: 75MG IN MORNING AND 150 MG IN EVENING
  2. LYRICA [Suspect]
     Dosage: 100MG IN MORNING AND 300 MG IN EVENING

REACTIONS (2)
  - WEIGHT INCREASED [None]
  - OEDEMA PERIPHERAL [None]
